FAERS Safety Report 7999453-1 (Version None)
Quarter: 2011Q4

REPORT INFORMATION
  Report Type: 
  Country: None (occurrence: None)
  Receive Date: 20111221
  Receipt Date: 20111219
  Transmission Date: 20120403
  Serious: No
  Sender: FDA-Public Use
  Company Number: US-PFIZER INC-2011308012

PATIENT
  Sex: Male
  Weight: 177.78 kg

DRUGS (1)
  1. VIAGRA [Suspect]
     Dosage: 100 MG, UNK
     Dates: start: 20111217

REACTIONS (1)
  - ABDOMINAL DISCOMFORT [None]
